FAERS Safety Report 7658122-8 (Version None)
Quarter: 2011Q3

REPORT INFORMATION
  Report Type: 
  Country: None (occurrence: None)
  Receive Date: 20110802
  Receipt Date: 20110718
  Transmission Date: 20111222
  Serious: Yes (Other)
  Sender: FDA-Public Use
  Company Number: 2011MA008995

PATIENT
  Age: 45 Year
  Sex: Female

DRUGS (4)
  1. TRIAMCINOLONE ACETONIDE [Suspect]
     Indication: MACULAR OEDEMA
     Dosage: 4 MG;1X;IO
  2. POVIDONE IODINE [Suspect]
     Dosage: 5 PT;1X;TOP
     Route: 061
  3. PROPARACAINE HYDROCHLORIDE [Suspect]
     Indication: ANAESTHESIA
     Dosage: 0.5 PT;1X;OPH
  4. TOBRAMYCIN [Suspect]
     Indication: POSTOPERATIVE CARE
     Dosage: ;OPH
     Route: 047

REACTIONS (2)
  - OCULAR HYPERTENSION [None]
  - POST PROCEDURAL COMPLICATION [None]
